FAERS Safety Report 7586013-X (Version None)
Quarter: 2011Q2

REPORT INFORMATION
  Report Type: 
  Country: None (occurrence: None)
  Receive Date: 20110624
  Receipt Date: 20110615
  Transmission Date: 20111010
  Serious: Yes (Hospitalization)
  Sender: FDA-Public Use
  Company Number: WAES 1106USA01985

PATIENT
  Age: 32 Year
  Sex: Male
  Weight: 75.7507 kg

DRUGS (2)
  1. CAP VORINOSTAT [Suspect]
     Indication: HODGKIN'S DISEASE
     Dosage: 400 MG/DAILY/PO
     Route: 048
     Dates: start: 20110217
  2. NIACINAMIDE UNK [Suspect]
     Indication: HODGKIN'S DISEASE
     Dosage: 7700 MG/DAILY/PO; 6200 MG/DAILY/PO
     Route: 048
     Dates: start: 20110217

REACTIONS (3)
  - BACTERIAL INFECTION [None]
  - BLOOD CULTURE POSITIVE [None]
  - FATIGUE [None]
